FAERS Safety Report 5384227-0 (Version None)
Quarter: 2007Q3

REPORT INFORMATION
  Report Type: 
  Country: None (occurrence: None)
  Receive Date: 20070709
  Receipt Date: 20060523
  Transmission Date: 20080115
  Serious: Yes (Other)
  Sender: FDA-Public Use
  Company Number: US-2006-012590

PATIENT
  Age: 63 Year
  Sex: Male
  Weight: 86.2 kg

DRUGS (2)
  1. ULTRAVIST 300 [Suspect]
     Indication: COMPUTERISED TOMOGRAM ABDOMEN
     Dosage: 140 ML, 1 DOSE, INTRAVENOUS
     Route: 042
     Dates: start: 20060518, end: 20060518
  2. ATENOLOL [Concomitant]

REACTIONS (5)
  - FACE OEDEMA [None]
  - FEELING HOT [None]
  - FLUSHING [None]
  - ORTHOSTATIC HYPOTENSION [None]
  - SWELLING FACE [None]
